FAERS Safety Report 15806567 (Version 2)
Quarter: 2019Q1

REPORT INFORMATION
  Report Type: Spontaneous
  Country: US (occurrence: US)
  Receive Date: 20190110
  Receipt Date: 20190307
  Transmission Date: 20190417
  Serious: No
  Sender: FDA-Public Use
  Company Number: US-ASTRAZENECA-2019SE00847

PATIENT
  Age: 21297 Day
  Sex: Male
  Weight: 95.3 kg

DRUGS (2)
  1. JANUVIA [Concomitant]
     Active Substance: SITAGLIPTIN PHOSPHATE
     Indication: TYPE 2 DIABETES MELLITUS
     Route: 048
     Dates: start: 20181226
  2. BYDUREON [Suspect]
     Active Substance: EXENATIDE
     Indication: TYPE 2 DIABETES MELLITUS
     Route: 058
     Dates: start: 20181222

REACTIONS (5)
  - Diabetes mellitus inadequate control [Recovering/Resolving]
  - Incorrect dose administered by device [Unknown]
  - Blood glucose increased [Recovering/Resolving]
  - Device leakage [Unknown]
  - Medication error [Unknown]

NARRATIVE: CASE EVENT DATE: 20181222
